FAERS Safety Report 7505897-4 (Version None)
Quarter: 2011Q2

REPORT INFORMATION
  Report Type: 
  Country: None (occurrence: None)
  Receive Date: 20110526
  Receipt Date: 20110517
  Transmission Date: 20111010
  Serious: Yes (Hospitalization, Other)
  Sender: FDA-Public Use
  Company Number: US-ASTRAZENECA-2011SE30834

PATIENT
  Age: 22372 Day
  Sex: Male
  Weight: 104.3 kg

DRUGS (11)
  1. NORVASC [Concomitant]
  2. NIASPAN [Concomitant]
  3. PROVENGE [Suspect]
     Route: 042
     Dates: start: 20110415, end: 20110415
  4. VYTORIN [Concomitant]
  5. ESOMEPRAZOLE MAGNESIUM [Suspect]
     Route: 048
  6. ZOMETA [Concomitant]
  7. EFFEXOR [Concomitant]
  8. METFORMIN HCL [Concomitant]
  9. PROVENGE [Suspect]
     Indication: PROSTATE CANCER METASTATIC
     Route: 042
     Dates: start: 20110318, end: 20110318
  10. ASPIRIN [Concomitant]
  11. ELIGARD [Concomitant]

REACTIONS (30)
  - CERVICAL SPINAL STENOSIS [None]
  - DELIRIUM [None]
  - MOTOR DYSFUNCTION [None]
  - HYPONATRAEMIA [None]
  - CONSTIPATION [None]
  - DYSURIA [None]
  - ANAEMIA OF CHRONIC DISEASE [None]
  - MUSCLE SPASMS [None]
  - HOT FLUSH [None]
  - INTERVERTEBRAL DISC DEGENERATION [None]
  - MALAISE [None]
  - FATIGUE [None]
  - HYPERTENSION [None]
  - PARAESTHESIA [None]
  - GAIT DISTURBANCE [None]
  - PROSTATE CANCER METASTATIC [None]
  - DERMAL CYST [None]
  - LUNG DISORDER [None]
  - HYPERLIPIDAEMIA [None]
  - CARDIAC MURMUR [None]
  - NAUSEA [None]
  - MYALGIA [None]
  - METABOLIC SYNDROME [None]
  - ARTHRALGIA [None]
  - THROMBOCYTOPENIA [None]
  - CONFUSIONAL STATE [None]
  - BACK PAIN [None]
  - MALNUTRITION [None]
  - HEPATIC CYST [None]
  - ANAEMIA [None]
